FAERS Safety Report 7291929-8 (Version None)
Quarter: 2011Q1

REPORT INFORMATION
  Report Type: 
  Country: None (occurrence: None)
  Receive Date: 20110214
  Receipt Date: 20110208
  Transmission Date: 20110831
  Serious: Yes (Death, Hospitalization)
  Sender: FDA-Public Use
  Company Number: GB-ABBOTT-10P-167-0686560-00

PATIENT
  Sex: Male
  Weight: 95 kg

DRUGS (1)
  1. HUMIRA [Suspect]
     Indication: RHEUMATOID ARTHRITIS
     Route: 058
     Dates: start: 20100930, end: 20101106

REACTIONS (15)
  - PULMONARY CONGESTION [None]
  - PERICARDIAL EFFUSION [None]
  - PERICARDIAL HAEMORRHAGE [None]
  - INFLUENZA LIKE ILLNESS [None]
  - PERICARDITIS ADHESIVE [None]
  - ILL-DEFINED DISORDER [None]
  - ARTERIOSCLEROSIS CORONARY ARTERY [None]
  - BRONCHOPNEUMONIA [None]
  - HYPOTHERMIA [None]
  - AORTIC ARTERIOSCLEROSIS [None]
  - MYOCARDIAL ISCHAEMIA [None]
  - MALAISE [None]
  - PULMONARY OEDEMA [None]
  - PLEURAL EFFUSION [None]
  - MYOCARDIAL FIBROSIS [None]
